FAERS Safety Report 19906774 (Version 2)
Quarter: 2021Q4

REPORT INFORMATION
  Report Type: Report from Study
  Country: CR (occurrence: CR)
  Receive Date: 20211001
  Receipt Date: 20211021
  Transmission Date: 20220303
  Serious: No
  Sender: FDA-Public Use
  Company Number: CR-BIOGEN-2021BI01052504

PATIENT
  Age: 48 Year
  Sex: Female
  Weight: 61 kg

DRUGS (7)
  1. AVONEX [Suspect]
     Active Substance: INTERFERON BETA-1A
     Indication: Relapsing multiple sclerosis
     Route: 030
     Dates: start: 20181007
  2. AVONEX [Suspect]
     Active Substance: INTERFERON BETA-1A
  3. AVONEX [Suspect]
     Active Substance: INTERFERON BETA-1A
  4. AVONEX [Suspect]
     Active Substance: INTERFERON BETA-1A
  5. EPIVAL [Concomitant]
     Active Substance: DIVALPROEX SODIUM
     Indication: Pain
     Route: 065
     Dates: start: 202101
  6. FOLIC ACID [Concomitant]
     Active Substance: FOLIC ACID
     Indication: Vitamin supplementation
     Route: 065
  7. GABAPENTIN [Concomitant]
     Active Substance: GABAPENTIN
     Indication: Neuralgia
     Route: 065
     Dates: start: 202101

REACTIONS (2)
  - Human papilloma virus test positive [Not Recovered/Not Resolved]
  - Uterine cervical metaplasia [Unknown]

NARRATIVE: CASE EVENT DATE: 20210703
